FAERS Safety Report 7557985-4 (Version None)
Quarter: 2011Q2

REPORT INFORMATION
  Report Type: 
  Country: None (occurrence: None)
  Receive Date: 20110620
  Receipt Date: 20110610
  Transmission Date: 20111010
  Serious: Yes (Hospitalization, Other)
  Sender: FDA-Public Use
  Company Number: US-US-EMD SERONO, INC.-7007458

PATIENT
  Sex: Female
  Weight: 54 kg

DRUGS (3)
  1. SOMA [Concomitant]
     Indication: NECK PAIN
     Dates: start: 20100401
  2. TYLENOL PM [Concomitant]
     Indication: NECK PAIN
  3. REBIF [Suspect]
     Indication: MULTIPLE SCLEROSIS
     Route: 058
     Dates: start: 20070730

REACTIONS (5)
  - INJECTION SITE ERYTHEMA [None]
  - CERVIX CARCINOMA [None]
  - INTERVERTEBRAL DISC PROTRUSION [None]
  - SPINAL CORD COMPRESSION [None]
  - UTERINE CANCER [None]
